FAERS Safety Report 23525277 (Version 8)
Quarter: 2024Q4

REPORT INFORMATION
  Report Type: Spontaneous
  Country: ES (occurrence: ES)
  Receive Date: 20240215
  Receipt Date: 20241001
  Transmission Date: 20250115
  Serious: Yes (Other)
  Sender: CELLTRION
  Company Number: ES-CELLTRION INC.-2024ES003282

PATIENT

DRUGS (7)
  1. ADALIMUMAB [Suspect]
     Active Substance: ADALIMUMAB
     Indication: Spondylitis
     Dosage: 40 MILLIGRAM, Q2WK
     Route: 058
  2. JANSSEN COVID-19 VACCINE [Suspect]
     Active Substance: AD26.COV2.S
     Indication: COVID-19 prophylaxis
     Dosage: DOSE 1
     Route: 065
  3. SPIKEVAX [Suspect]
     Active Substance: CX-046684
     Indication: COVID-19 prophylaxis
     Dosage: DOSE 2
     Route: 065
  4. MODERNA COVID-19 VACCINE [Suspect]
     Active Substance: ELASOMERAN
     Indication: COVID-19 prophylaxis
     Dosage: UNK, 2ND DOSE, RECEIVED THE SECOND COVID VACCINE THE PREVIOUS WEEK
  5. MODERNA COVID-19 VACCINE [Suspect]
     Active Substance: ELASOMERAN
     Indication: COVID-19 prophylaxis
     Dosage: DOSE SERIES 2
     Route: 065
  6. JANSSEN COVID-19 VACCINE [Suspect]
     Active Substance: AD26.COV2.S
     Indication: COVID-19 prophylaxis
     Dosage: DOSE SERIES 1
     Route: 065
  7. COVID-19 VACCINE NOS [Suspect]
     Active Substance: COVID-19 VACCINE
     Indication: Product used for unknown indication
     Dosage: UNK, 2ND DOSE
     Route: 065

REACTIONS (6)
  - Acute generalised exanthematous pustulosis [Recovering/Resolving]
  - Palmoplantar pustulosis [Recovering/Resolving]
  - Skin reaction [Recovering/Resolving]
  - Interchange of vaccine products [Unknown]
  - COVID-19 immunisation [Unknown]
  - Off label use [Unknown]
